FAERS Safety Report 5176756-X (Version None)
Quarter: 2006Q4

REPORT INFORMATION
  Report Type: 
  Country: None (occurrence: None)
  Receive Date: 20061218
  Receipt Date: 20061207
  Transmission Date: 20070319
  Serious: Yes (Hospitalization)
  Sender: FDA-Public Use
  Company Number: FR-JNJFOC-20061201886

PATIENT
  Age: 3 Decade
  Sex: Female
  Weight: 43 kg

DRUGS (3)
  1. INFLIXIMAB [Suspect]
     Indication: CROHN'S DISEASE
     Route: 042
  2. IMUREL [Suspect]
     Indication: CROHN'S DISEASE
     Route: 065
  3. PREDNISONE TAB [Concomitant]
     Indication: CROHN'S DISEASE
     Route: 065

REACTIONS (1)
  - LISTERIOSIS [None]
